FAERS Safety Report 13196210 (Version 2)
Quarter: 2017Q1

REPORT INFORMATION
  Report Type: Report from Study
  Country: US (occurrence: US)
  Receive Date: 20170208
  Receipt Date: 20170213
  Transmission Date: 20170428
  Serious: Yes (Other)
  Sender: FDA-Public Use
  Company Number: US-AMGEN-USASL2017019362

PATIENT
  Age: 36 Year
  Sex: Male

DRUGS (2)
  1. ENBREL [Suspect]
     Active Substance: ETANERCEPT
     Indication: PSORIATIC ARTHROPATHY
     Dosage: UNK
     Route: 065
  2. ENBREL [Suspect]
     Active Substance: ETANERCEPT
     Indication: RHEUMATOID ARTHRITIS
     Dosage: EVERY THREE WEEKS
     Route: 065

REACTIONS (12)
  - Pyrexia [Unknown]
  - Injection site pain [Unknown]
  - Depression [Unknown]
  - Feeling abnormal [Unknown]
  - Psoriasis [Unknown]
  - Intentional product misuse [Unknown]
  - Drug dispensing error [Unknown]
  - Malaise [Unknown]
  - Mood altered [Unknown]
  - Fear of injection [Unknown]
  - Rheumatoid arthritis [Unknown]
  - Drug dose omission [Unknown]
